FAERS Safety Report 8335851-4 (Version None)
Quarter: 2012Q2

REPORT INFORMATION
  Report Type: 
  Country: None (occurrence: None)
  Receive Date: 20120504
  Receipt Date: 20120430
  Transmission Date: 20120825
  Serious: No
  Sender: FDA-Public Use
  Company Number: US-PFIZER INC-2012106421

PATIENT
  Sex: Male
  Weight: 204.8 kg

DRUGS (2)
  1. VIAGRA [Suspect]
     Indication: ERECTILE DYSFUNCTION
     Dosage: UNK
     Route: 048
     Dates: start: 20110101
  2. MULTI-VITAMINS [Concomitant]
     Dosage: UNK

REACTIONS (1)
  - TESTICULAR DISORDER [None]
